FAERS Safety Report 8391992-7 (Version None)
Quarter: 2012Q2

REPORT INFORMATION
  Report Type: 
  Country: None (occurrence: None)
  Receive Date: 20120529
  Receipt Date: 20120515
  Transmission Date: 20120825
  Serious: No
  Sender: FDA-Public Use
  Company Number: US-ASTRAZENECA-2011SE21837

PATIENT
  Age: 20 Year
  Sex: Male

DRUGS (3)
  1. SEROQUEL [Suspect]
     Indication: INSOMNIA
     Route: 048
  2. SEROQUEL [Suspect]
     Route: 048
  3. SEROQUEL [Suspect]
     Route: 048

REACTIONS (3)
  - SLEEP DISORDER [None]
  - INSOMNIA [None]
  - INTENTIONAL DRUG MISUSE [None]
